FAERS Safety Report 10181765 (Version 1)
Quarter: 2014Q2

REPORT INFORMATION
  Report Type: Spontaneous
  Country: US (occurrence: US)
  Receive Date: 20140519
  Receipt Date: 20140519
  Transmission Date: 20141212
  Serious: No
  Sender: FDA-Public Use
  Company Number: US-LUNDBECK-DKLU1099426

PATIENT
  Age: 1 Year
  Sex: Female
  Weight: 7 kg

DRUGS (2)
  1. SABRIL (FOR ORAL SOLUTION) [Suspect]
     Indication: INFANTILE SPASMS
     Route: 048
     Dates: start: 20131214
  2. SABRIL (FOR ORAL SOLUTION) [Suspect]
     Indication: TUBEROUS SCLEROSIS

REACTIONS (1)
  - Drug dose omission [Not Recovered/Not Resolved]
